FAERS Safety Report 9501707 (Version 1)
Quarter: 2013Q1

REPORT INFORMATION
  Report Type: Spontaneous
  Country: US (occurrence: None)
  Receive Date: 20130107
  Receipt Date: 20130107
  Transmission Date: 20140127
  Serious: No
  Sender: FDA-Public Use
  Company Number: PHEH2012US020061

PATIENT
  Age: 57 Year
  Sex: Female
  Weight: 49.9 kg

DRUGS (1)
  1. GILENYA (FINGOLIMOD) CAPSULE, 0.5MG [Suspect]
     Indication: MULTIPLE SCLEROSIS
     Dosage: 0.5 MG, QD, ORAL
     Route: 048
     Dates: start: 20121010

REACTIONS (2)
  - Chills [None]
  - Cough [None]
